FAERS Safety Report 15686531 (Version 3)
Quarter: 2021Q1

REPORT INFORMATION
  Report Type: Spontaneous
  Country: CZ (occurrence: CZ)
  Receive Date: 20181204
  Receipt Date: 20210118
  Transmission Date: 20210419
  Serious: Yes (Other)
  Sender: FDA-Public Use
  Company Number: PHHY2018CZ171030

PATIENT
  Age: 42 Year
  Sex: Male

DRUGS (6)
  1. METHOTREXATE. [Suspect]
     Active Substance: METHOTREXATE
     Indication: PSORIATIC ARTHROPATHY
     Dosage: 7.5 MG
     Route: 048
     Dates: start: 2013, end: 201307
  2. METHOTREXATE. [Suspect]
     Active Substance: METHOTREXATE
     Dosage: 2 DF, QW STRENGTH: 2.5 MG
     Route: 048
  3. METHOTREXATE. [Suspect]
     Active Substance: METHOTREXATE
     Indication: PSORIASIS
     Dosage: 2.5 MG
     Route: 065
     Dates: start: 2013, end: 201307
  4. METHYLPREDNISOLONE. [Concomitant]
     Active Substance: METHYLPREDNISOLONE
     Indication: ARTHROPATHY
     Dosage: 4 MG 1?0?0 LONG TERM
     Route: 065
  5. METHOTREXATE. [Suspect]
     Active Substance: METHOTREXATE
     Indication: ARTHROPATHY
     Dosage: 15 MG, QW
     Route: 048
     Dates: start: 2013, end: 201307
  6. METHOTREXATE. [Suspect]
     Active Substance: METHOTREXATE
     Dosage: UNK, QW2
     Route: 048
     Dates: start: 201403, end: 201404

REACTIONS (3)
  - Abdominal discomfort [Unknown]
  - Nausea [Recovered/Resolved]
  - Gastric disorder [Recovered/Resolved]

NARRATIVE: CASE EVENT DATE: 2013
